FAERS Safety Report 25746128 (Version 2)
Quarter: 2025Q4

REPORT INFORMATION
  Report Type: Spontaneous
  Country: US (occurrence: US)
  Receive Date: 20250901
  Receipt Date: 20251003
  Transmission Date: 20260119
  Serious: No
  Sender: AMGEN
  Company Number: US-AMGEN-USASP2025171115

PATIENT
  Age: 27 Year
  Sex: Female

DRUGS (3)
  1. AMJEVITA [Suspect]
     Active Substance: ADALIMUMAB-ATTO
     Indication: Product used for unknown indication
     Dosage: 40 MILLIGRAM (40MG 0.4ML)
     Route: 065
     Dates: start: 2025
  2. AMJEVITA [Suspect]
     Active Substance: ADALIMUMAB-ATTO
     Dosage: UNK
     Route: 065
  3. AMJEVITA [Suspect]
     Active Substance: ADALIMUMAB-ATTO
     Dosage: UNK
     Route: 065

REACTIONS (2)
  - Accidental exposure to product [Unknown]
  - Fear of injection [Unknown]

NARRATIVE: CASE EVENT DATE: 20250823
